FAERS Safety Report 19964686 (Version 4)
Quarter: 2022Q1

REPORT INFORMATION
  Report Type: Spontaneous
  Country: US (occurrence: US)
  Receive Date: 20211018
  Receipt Date: 20220201
  Transmission Date: 20220423
  Serious: Yes (Hospitalization)
  Sender: FDA-Public Use
  Company Number: US-GLOBAL BLOOD THERAPEUTICS INC-US-GBT-21-03383

PATIENT
  Sex: Female

DRUGS (3)
  1. OXBRYTA [Suspect]
     Active Substance: VOXELOTOR
     Indication: Sickle cell disease
     Route: 048
     Dates: start: 20210709
  2. OXBRYTA [Suspect]
     Active Substance: VOXELOTOR
     Route: 048
  3. UNKNOWN ALLERGY MEDICATION [Concomitant]
     Indication: Seasonal allergy
     Dosage: NOT PROVIDED.

REACTIONS (7)
  - Sickle cell anaemia with crisis [Unknown]
  - Pneumonia [Unknown]
  - Sickle cell anaemia with crisis [Not Recovered/Not Resolved]
  - Seasonal allergy [Unknown]
  - Sickle cell disease [Unknown]
  - Product dose omission issue [Unknown]
  - Off label use [Unknown]

NARRATIVE: CASE EVENT DATE: 20210101
